FAERS Safety Report 12114105 (Version 2)
Quarter: 2016Q1

REPORT INFORMATION
  Report Type: Spontaneous
  Country: IT (occurrence: IT)
  Receive Date: 20160225
  Receipt Date: 20160331
  Transmission Date: 20160526
  Serious: Yes (Other)
  Sender: FDA-Public Use
  Company Number: IT-TEVA-638245ACC

PATIENT

DRUGS (1)
  1. AMOXICILLIN /CLAVULANIC ACID [Suspect]
     Active Substance: AMOXICILLIN\CLAVULANIC ACID
     Indication: SINUSITIS

REACTIONS (2)
  - Parophthalmia [Unknown]
  - Visual acuity reduced [Unknown]
